FAERS Safety Report 4973510-6 (Version None)
Quarter: 2006Q2

REPORT INFORMATION
  Report Type: 
  Country: None (occurrence: None)
  Receive Date: 20060413
  Receipt Date: 20060413
  Transmission Date: 20061013
  Serious: Yes (Life-Threatening)
  Sender: FDA-Public Use
  Company Number: None

PATIENT
  Age: 66 Year
  Sex: Female

DRUGS (2)
  1. EVISTA [Suspect]
     Indication: OSTEOPOROSIS
     Dosage: ORAL;60.0 MILLIGRAM
     Route: 048
     Dates: start: 20040101, end: 20060201
  2. CLOPIDOGREL [Concomitant]

REACTIONS (4)
  - PAIN IN EXTREMITY [None]
  - PAIN OF SKIN [None]
  - PULMONARY EMBOLISM [None]
  - SKIN TIGHTNESS [None]
